FAERS Safety Report 7942613-6 (Version None)
Quarter: 2011Q4

REPORT INFORMATION
  Report Type: 
  Country: None (occurrence: None)
  Receive Date: 20111128
  Receipt Date: 20111123
  Transmission Date: 20120403
  Serious: Yes (Life-Threatening, Hospitalization)
  Sender: FDA-Public Use
  Company Number: FR-BRISTOL-MYERS SQUIBB COMPANY-16203267

PATIENT
  Age: 41 Year
  Sex: Female
  Weight: 120 kg

DRUGS (5)
  1. TRANXENE [Concomitant]
     Indication: ANXIETY
     Dosage: 10MG IS THE STRENGTH
     Route: 048
  2. HALDOL [Suspect]
     Indication: DELUSION
     Dosage: 5MG IS THE STRENGTH
     Route: 048
  3. TEGRETOL [Suspect]
     Indication: BIPOLAR I DISORDER
     Dosage: 2 TABLETS DAILY
     Route: 048
  4. TERCIAN [Suspect]
     Indication: SLEEP DISORDER
  5. ABILIFY [Suspect]
     Indication: BIPOLAR I DISORDER
     Dosage: REINTRODUCED AT 10MG DAILY
     Route: 048
     Dates: start: 20091201

REACTIONS (3)
  - SEPTIC SHOCK [None]
  - DELUSION [None]
  - SUICIDE ATTEMPT [None]
